FAERS Safety Report 6882828-1 (Version None)
Quarter: 2010Q3

REPORT INFORMATION
  Report Type: 
  Country: None (occurrence: None)
  Receive Date: 20100727
  Receipt Date: 20100715
  Transmission Date: 20110219
  Serious: Yes (Death, Hospitalization)
  Sender: FDA-Public Use
  Company Number: 237462J08USA

PATIENT
  Age: 61 Year
  Sex: Male
  Weight: 113 kg

DRUGS (3)
  1. REBIF [Suspect]
     Indication: MULTIPLE SCLEROSIS
     Dosage: SUBCUTANEOUS
     Route: 058
     Dates: start: 20051014, end: 20070101
  2. COPAXONE [Suspect]
     Dates: start: 20070101, end: 20080329
  3. UNSPECIFIED BLOOD PRESSURE MEDICATION (ANTIHYPERTENSIVES) [Concomitant]

REACTIONS (1)
  - GLIOBLASTOMA MULTIFORME [None]
